FAERS Safety Report 8552293-7 (Version None)
Quarter: 2012Q3

REPORT INFORMATION
  Report Type: 
  Country: None (occurrence: None)
  Receive Date: 20120723
  Receipt Date: 20120723
  Transmission Date: 20120928
  Serious: Yes (Other)
  Sender: FDA-Public Use
  Company Number: None

PATIENT
  Age: 86 Year
  Sex: Male
  Weight: 96.1626 kg

DRUGS (1)
  1. ANDROGEL [Suspect]
     Indication: FATIGUE
     Dosage: 2 PUMPS ONCE DAILY TRANSDERMAL
     Route: 062
     Dates: start: 20120710, end: 20120720

REACTIONS (3)
  - OEDEMA PERIPHERAL [None]
  - URINE FLOW DECREASED [None]
  - WEIGHT INCREASED [None]
